FAERS Safety Report 24232306 (Version 1)
Quarter: 2024Q3

REPORT INFORMATION
  Report Type: Spontaneous
  Country: CA (occurrence: CA)
  Receive Date: 20240821
  Receipt Date: 20240821
  Transmission Date: 20241016
  Serious: Yes (Life-Threatening)
  Sender: NOVARTIS
  Company Number: CA-002147023-NVSC2024CA168748

PATIENT
  Age: 69 Year
  Sex: Male
  Weight: 66 kg

DRUGS (1)
  1. KYMRIAH [Suspect]
     Active Substance: TISAGENLECLEUCEL
     Indication: Diffuse large B-cell lymphoma refractory
     Dosage: 1 DOSAGE FORM, ONCE/SINGLE
     Route: 042

REACTIONS (1)
  - Transitional cell carcinoma [Not Recovered/Not Resolved]
